FAERS Safety Report 8790116 (Version 1)
Quarter: 2012Q4

REPORT INFORMATION
  Report Type: 
  Country: US (occurrence: US)
  Receive Date: 20120917
  Receipt Date: 20120917
  Transmission Date: 20130627
  Serious: Yes (Other)
  Sender: FDA-Public Use
  Company Number: US-009507513-1209USA005826

PATIENT

DRUGS (1)
  1. SAPHRIS [Suspect]
     Dosage: 5 mg, bid
     Route: 060

REACTIONS (8)
  - Swollen tongue [Unknown]
  - Feeling abnormal [Unknown]
  - Nervous system disorder [Unknown]
  - Dysstasia [Unknown]
  - Convulsion [Unknown]
  - Dyskinesia [Unknown]
  - Fatigue [Unknown]
  - Drug ineffective [Unknown]
